FAERS Safety Report 17154384 (Version 1)
Quarter: 2019Q4

REPORT INFORMATION
  Report Type: Report from Study
  Country: US (occurrence: US)
  Receive Date: 20191213
  Receipt Date: 20191213
  Transmission Date: 20200122
  Serious: No
  Sender: FDA-Public Use
  Company Number: NVSC2019US027038

PATIENT
  Sex: Female

DRUGS (2)
  1. PROMACTA [Suspect]
     Active Substance: ELTROMBOPAG OLAMINE
     Dosage: DOSE CUT IN HALF DUE TO PLATELET COUNT
     Route: 048
  2. PROMACTA [Suspect]
     Active Substance: ELTROMBOPAG OLAMINE
     Indication: PRODUCT USED FOR UNKNOWN INDICATION
     Route: 048

REACTIONS (6)
  - Mastication disorder [Unknown]
  - Hypogeusia [Unknown]
  - Pain in extremity [Unknown]
  - Platelet count increased [Unknown]
  - Peripheral swelling [Unknown]
  - Jaw disorder [Unknown]
